FAERS Safety Report 16838821 (Version 2)
Quarter: 2020Q3

REPORT INFORMATION
  Report Type: Spontaneous
  Country: US (occurrence: US)
  Receive Date: 20190923
  Receipt Date: 20200824
  Transmission Date: 20201102
  Serious: Yes (Death, Hospitalization, Other)
  Sender: FDA-Public Use
  Company Number: US-GILEAD-2019-0429434

PATIENT
  Sex: Male

DRUGS (7)
  1. SPIRONOLACTONE. [Concomitant]
     Active Substance: SPIRONOLACTONE
  2. NADOLOL. [Concomitant]
     Active Substance: NADOLOL
  3. LACTULOSE. [Concomitant]
     Active Substance: LACTULOSE
  4. ALPRAZOLAM. [Concomitant]
     Active Substance: ALPRAZOLAM
  5. XIFAXAN [Concomitant]
     Active Substance: RIFAXIMIN
  6. ZINC. [Concomitant]
     Active Substance: ZINC
  7. VIREAD [Suspect]
     Active Substance: TENOFOVIR DISOPROXIL FUMARATE
     Indication: HEPATITIS B
     Dosage: UNK
     Route: 048
     Dates: start: 2009, end: 20180407

REACTIONS (8)
  - Anxiety [Unknown]
  - Pain [Unknown]
  - Economic problem [Not Recovered/Not Resolved]
  - Blood creatinine increased [Unknown]
  - Injury [Unknown]
  - Acute kidney injury [Fatal]
  - Emotional distress [Unknown]
  - Anhedonia [Unknown]

NARRATIVE: CASE EVENT DATE: 2017
